FAERS Safety Report 25119981 (Version 1)
Quarter: 2025Q1

REPORT INFORMATION
  Report Type: Spontaneous
  Country: IT (occurrence: IT)
  Receive Date: 20250325
  Receipt Date: 20250325
  Transmission Date: 20250408
  Serious: Yes (Death, Other)
  Sender: AMGEN
  Company Number: IT-AMGEN-ITASP2025055526

PATIENT

DRUGS (1)
  1. BEVACIZUMAB [Suspect]
     Active Substance: BEVACIZUMAB
     Indication: Glioblastoma
     Dosage: UNK UNK, Q2WK, 5 MG/KG OR 10 MG/KG
     Route: 065

REACTIONS (9)
  - Death [Fatal]
  - Glioblastoma [Unknown]
  - Embolism venous [Unknown]
  - Embolism arterial [Unknown]
  - Off label use [Unknown]
  - Hypertension [Unknown]
  - Haemorrhage [Unknown]
  - Proteinuria [Unknown]
  - Therapeutic product effect incomplete [Unknown]
